FAERS Safety Report 11858379 (Version 2)
Quarter: 2016Q1

REPORT INFORMATION
  Report Type: Spontaneous
  Country: JP (occurrence: JP)
  Receive Date: 20151222
  Receipt Date: 20160122
  Transmission Date: 20160526
  Serious: No
  Sender: FDA-Public Use
  Company Number: JP-ELI_LILLY_AND_COMPANY-JP201512003479

PATIENT
  Age: 54 Year
  Sex: Female
  Weight: 39.8 kg

DRUGS (8)
  1. URSODEOXYCHOL [Concomitant]
     Indication: CHOLESTASIS
     Dosage: UNK
     Route: 048
     Dates: start: 20150506
  2. CYRAMZA [Suspect]
     Active Substance: RAMUCIRUMAB
     Dosage: 300 MG, OTHER
     Route: 042
     Dates: start: 20151119, end: 20151201
  3. FUROSEMIDE. [Concomitant]
     Active Substance: FUROSEMIDE
     Indication: ASCITES
     Dosage: UNK
     Route: 048
     Dates: start: 20150114
  4. CYRAMZA [Suspect]
     Active Substance: RAMUCIRUMAB
     Indication: GASTRIC CANCER RECURRENT
     Dosage: 500 MG, OTHER
     Route: 042
     Dates: start: 20151105
  5. MAGMITT [Concomitant]
     Active Substance: MAGNESIUM OXIDE
     Indication: CONSTIPATION
     Dosage: UNK
     Route: 048
     Dates: start: 20150416
  6. CAMOSTAT MESILATE [Concomitant]
     Active Substance: CAMOSTAT MESYLATE
     Indication: GASTROOESOPHAGEAL REFLUX DISEASE
     Dosage: UNK
     Route: 048
     Dates: start: 20150506
  7. OXYCONTIN [Concomitant]
     Active Substance: OXYCODONE HYDROCHLORIDE
     Indication: CANCER PAIN
     Dosage: UNK
     Route: 048
     Dates: start: 20150407
  8. PACLITAXEL. [Suspect]
     Active Substance: PACLITAXEL
     Indication: GASTRIC CANCER RECURRENT
     Dosage: 80 MG/M2, UNK
     Route: 042
     Dates: start: 201504, end: 201512

REACTIONS (1)
  - Venous thrombosis limb [Recovering/Resolving]

NARRATIVE: CASE EVENT DATE: 20151208
